FAERS Safety Report 8972019 (Version 1)
Quarter: 2012Q4

REPORT INFORMATION
  Report Type: 
  Country: AR (occurrence: AR)
  Receive Date: 20121218
  Receipt Date: 20121218
  Transmission Date: 20130627
  Serious: Yes (Hospitalization, Other)
  Sender: FDA-Public Use
  Company Number: PHHY2012AR115408

PATIENT
  Sex: Female

DRUGS (3)
  1. GALVUS MET [Suspect]
     Indication: DIABETES MELLITUS
     Dosage: 1 DF, BID
     Route: 048
     Dates: start: 2011, end: 201211
  2. DILTIAZEM [Suspect]
     Indication: HYPERTENSION
     Dosage: UNK
  3. DILTIAZEM [Suspect]
     Indication: TACHYCARDIA

REACTIONS (6)
  - Pneumonia [Recovered/Resolved]
  - Malaise [Unknown]
  - Heart rate decreased [Unknown]
  - Hypotension [Recovered/Resolved]
  - Dizziness [Unknown]
  - Syncope [Unknown]
